FAERS Safety Report 9306901 (Version 1)
Quarter: 2013Q2

REPORT INFORMATION
  Report Type: Spontaneous
  Country: DE (occurrence: DE)
  Receive Date: 20130523
  Receipt Date: 20130523
  Transmission Date: 20140414
  Serious: Yes (Other)
  Sender: FDA-Public Use
  Company Number: GXKR2013DE001881

PATIENT
  Sex: Female
  Weight: 92 kg

DRUGS (2)
  1. SERTRALINE [Suspect]
     Indication: PANIC DISORDER
     Dosage: 50 MG, UNK (0.-40. GESTATIONAL WEEK)
     Route: 048
     Dates: start: 20120514, end: 20130222
  2. FOLIC ACID [Concomitant]
     Indication: PROPHYLAXIS OF NEURAL TUBE DEFECT
     Dosage: 0.4 MG, UNK (4.-30. GESTATIONAL WEEK)
     Route: 048

REACTIONS (2)
  - Stillbirth [Recovered/Resolved]
  - Umbilical cord abnormality [Recovered/Resolved]
